FAERS Safety Report 26037689 (Version 1)
Quarter: 2025Q4

REPORT INFORMATION
  Report Type: Spontaneous
  Country: EU (occurrence: EU)
  Receive Date: 20251112
  Receipt Date: 20251112
  Transmission Date: 20260118
  Serious: Yes (Other)
  Sender: TAKEDA
  Company Number: EU-JNJFOC-20251009548

PATIENT
  Age: 70 Year
  Sex: Female

DRUGS (9)
  1. BORTEZOMIB [Suspect]
     Active Substance: BORTEZOMIB
     Indication: Erythema annulare
     Dosage: 1.3 MILLIGRAM/SQ. METER
  2. BORTEZOMIB [Suspect]
     Active Substance: BORTEZOMIB
     Indication: Plasma cell myeloma
  3. TACROLIMUS [Suspect]
     Active Substance: TACROLIMUS
     Indication: Erythema annulare
     Dosage: UNK
     Route: 061
  4. CALCIPOTRIENE [Suspect]
     Active Substance: CALCIPOTRIENE
     Indication: Erythema annulare
     Dosage: UNK
     Route: 061
  5. DIMETHINDENE [Suspect]
     Active Substance: DIMETHINDENE
     Indication: Erythema annulare
     Dosage: UNK
  6. DIMETHINDENE [Suspect]
     Active Substance: DIMETHINDENE
     Dosage: UNK
  7. DIMETHINDENE [Suspect]
     Active Substance: DIMETHINDENE
     Dosage: UNK
  8. PREDNISOLONE SODIUM SUCCINATE [Suspect]
     Active Substance: PREDNISOLONE SODIUM SUCCINATE
     Indication: Erythema annulare
     Dosage: UNK
  9. PREDNISOLONE SODIUM SUCCINATE [Suspect]
     Active Substance: PREDNISOLONE SODIUM SUCCINATE
     Dosage: UNK

REACTIONS (2)
  - Therapy non-responder [Unknown]
  - Off label use [Unknown]
